FAERS Safety Report 5769398-6 (Version None)
Quarter: 2008Q2

REPORT INFORMATION
  Report Type: 
  Country: None (occurrence: None)
  Receive Date: 20080612
  Receipt Date: 20080328
  Transmission Date: 20081010
  Serious: No
  Sender: FDA-Public Use
  Company Number: US-ABBOTT-08P-163-0444748-00

PATIENT
  Sex: Female
  Weight: 76.272 kg

DRUGS (3)
  1. HUMIRA [Suspect]
     Indication: ANKYLOSING SPONDYLITIS
     Route: 058
     Dates: start: 20080201
  2. METFORMIN HCL [Concomitant]
     Indication: DIABETES MELLITUS
     Route: 048
  3. GENUVIA [Concomitant]
     Indication: DIABETES MELLITUS
     Route: 048

REACTIONS (5)
  - INJECTION SITE IRRITATION [None]
  - MIGRAINE [None]
  - NASAL DRYNESS [None]
  - RHINITIS [None]
  - THROAT IRRITATION [None]
